FAERS Safety Report 11302436 (Version 1)
Quarter: 2015Q3

REPORT INFORMATION
  Report Type: Spontaneous
  Country: None (occurrence: None)
  Receive Date: 20150723
  Receipt Date: 20150723
  Transmission Date: 20151125
  Serious: Yes (Life-Threatening)
  Sender: FDA-Public Use
  Company Number: None

PATIENT
  Age: 29 Year
  Sex: Female
  Weight: 60.78 kg

DRUGS (1)
  1. HYDROCODONE 7.5 MG WATSON [Suspect]
     Active Substance: HYDROCODONE
     Indication: NECK PAIN
     Dosage: 3 PILLS / DAY AS NEEDED
     Route: 048
     Dates: start: 20150715, end: 20150716

REACTIONS (2)
  - Dyspnoea [None]
  - Hypopnoea [None]

NARRATIVE: CASE EVENT DATE: 20150715
